FAERS Safety Report 9235460 (Version 4)
Quarter: 2013Q3

REPORT INFORMATION
  Report Type: Report from Study
  Country: JP (occurrence: JP)
  Receive Date: 20130417
  Receipt Date: 20130723
  Transmission Date: 20140515
  Serious: Yes (Death, Life-Threatening, Hospitalization, Other)
  Sender: FDA-Public Use
  Company Number: JP-SHIRE-ALL1-2013-02376

PATIENT
  Age: 41 Year
  Sex: Male
  Weight: 60 kg

DRUGS (4)
  1. IDURSULFASE [Suspect]
     Indication: MUCOPOLYSACCHARIDOSIS II
     Dosage: 30 MG, UNKNOWN
     Route: 041
     Dates: end: 20130408
  2. IDURSULFASE [Suspect]
     Dosage: UNK, UNKNOWN
     Route: 041
     Dates: start: 20130129
  3. CARBOCISTEINE [Concomitant]
     Indication: MUCOPOLYSACCHARIDOSIS II
     Dosage: 500 MG, 3X/DAY:TID
     Route: 048
     Dates: end: 20130426
  4. ERYTHROMYCIN [Concomitant]
     Indication: MUCOPOLYSACCHARIDOSIS II
     Dosage: 100 MG, 2X/DAY:BID
     Route: 048
     Dates: end: 20130426

REACTIONS (3)
  - Arrhythmia [Fatal]
  - Altered state of consciousness [Not Recovered/Not Resolved]
  - Fall [Recovered/Resolved]
